FAERS Safety Report 23923321 (Version 2)
Quarter: 2024Q2

REPORT INFORMATION
  Report Type: Other
  Country: CN (occurrence: None)
  Receive Date: 20240531
  Receipt Date: 20240605
  Transmission Date: 20240716
  Serious: Yes (Other)
  Sender: FDA-Public Use
  Company Number: CN-ROCHE-3568329

PATIENT
  Age: 58 Year
  Sex: Female
  Weight: 68 kg

DRUGS (1)
  1. POLIVY [Suspect]
     Active Substance: POLATUZUMAB VEDOTIN-PIIQ
     Indication: Diffuse large B-cell lymphoma
     Route: 041
     Dates: start: 20240505

REACTIONS (6)
  - Agranulocytosis [Unknown]
  - Platelet count decreased [Unknown]
  - Pyrexia [Unknown]
  - Penis disorder [Recovering/Resolving]
  - Haemoglobin decreased [Unknown]
  - Fungal infection [Unknown]

NARRATIVE: CASE EVENT DATE: 20240517
